FAERS Safety Report 11445495 (Version 1)
Quarter: 2015Q3

REPORT INFORMATION
  Report Type: Spontaneous
  Country: US (occurrence: None)
  Receive Date: 20150901
  Receipt Date: 20150901
  Transmission Date: 20151125
  Serious: Yes (Other)
  Sender: FDA-Public Use
  Company Number: None

PATIENT
  Age: 80 Year
  Sex: Male
  Weight: 70.31 kg

DRUGS (3)
  1. APRISO [Concomitant]
     Active Substance: MESALAMINE
  2. LEVOFLOXACIN. [Suspect]
     Active Substance: LEVOFLOXACIN
     Indication: PROSTATIC OPERATION
     Dosage: 5 PILLS ONCE DAILY
     Route: 048
     Dates: start: 20150808, end: 20150812
  3. BENEFIBER [Concomitant]
     Active Substance: STARCH, WHEAT

REACTIONS (1)
  - Tendonitis [None]

NARRATIVE: CASE EVENT DATE: 20150811
